FAERS Safety Report 10488937 (Version 1)
Quarter: 2014Q4

REPORT INFORMATION
  Report Type: Spontaneous
  Country: FR (occurrence: FR)
  Receive Date: 20141002
  Receipt Date: 20141002
  Transmission Date: 20150528
  Serious: Yes (Hospitalization)
  Sender: FDA-Public Use
  Company Number: FR-BAYER-2014-141869

PATIENT
  Age: 86 Year
  Sex: Male

DRUGS (6)
  1. ATENOLOL. [Concomitant]
     Active Substance: ATENOLOL
     Dosage: UNK
  2. LASILIX [Concomitant]
     Active Substance: FUROSEMIDE
     Dosage: UNK
  3. CIFLOX [Suspect]
     Active Substance: CIPROFLOXACIN
     Dosage: 2 DF, UNK
     Route: 048
     Dates: start: 20140310, end: 20140318
  4. DIGOXINE [Concomitant]
     Active Substance: DIGOXIN
     Dosage: UNK
  5. ROCEPHINE [Suspect]
     Active Substance: CEFTRIAXONE SODIUM
     Dosage: 1 DF, UNK
     Route: 030
     Dates: start: 20140318, end: 20140326
  6. DIFFU K [Concomitant]
     Active Substance: POTASSIUM CHLORIDE
     Dosage: UNK

REACTIONS (1)
  - Nephritis allergic [Recovering/Resolving]

NARRATIVE: CASE EVENT DATE: 20140326
